FAERS Safety Report 17755583 (Version 6)
Quarter: 2022Q1

REPORT INFORMATION
  Report Type: Spontaneous
  Country: US (occurrence: US)
  Receive Date: 20200507
  Receipt Date: 20220215
  Transmission Date: 20220424
  Serious: Yes (Other)
  Sender: FDA-Public Use
  Company Number: US-PFIZER INC-2020181770

PATIENT
  Age: 48 Year
  Sex: Female

DRUGS (7)
  1. XELJANZ XR [Suspect]
     Active Substance: TOFACITINIB CITRATE
     Indication: Rheumatoid arthritis
     Dosage: 11 MG, 1X/DAY
     Route: 048
     Dates: start: 201911
  2. XELJANZ XR [Suspect]
     Active Substance: TOFACITINIB CITRATE
     Indication: Systemic lupus erythematosus
  3. HYDROXYCHLOROQUINE [Concomitant]
     Active Substance: HYDROXYCHLOROQUINE
     Dosage: UNK
  4. PREDNISONE [Concomitant]
     Active Substance: PREDNISONE
     Dosage: UNK
  5. PREDNISONE [Concomitant]
     Active Substance: PREDNISONE
     Dosage: 7.5 MG
  6. LEFLUNOMIDE [Concomitant]
     Active Substance: LEFLUNOMIDE
     Dosage: UNK
  7. TERBINAFINE [Concomitant]
     Active Substance: TERBINAFINE
     Dosage: UNK

REACTIONS (19)
  - Bipolar disorder [Not Recovered/Not Resolved]
  - Pain [Unknown]
  - Psoriatic arthropathy [Unknown]
  - Therapeutic product effect incomplete [Unknown]
  - Therapeutic response unexpected [Unknown]
  - Arthralgia [Recovering/Resolving]
  - Rash [Unknown]
  - Onychomycosis [Recovering/Resolving]
  - Dry mouth [Unknown]
  - Dry eye [Unknown]
  - Pruritus [Unknown]
  - Rash [Unknown]
  - Fatigue [Unknown]
  - Lethargy [Unknown]
  - Insomnia [Unknown]
  - Folliculitis [Unknown]
  - Increased tendency to bruise [Unknown]
  - Skin discolouration [Unknown]
  - Eczema [Unknown]

NARRATIVE: CASE EVENT DATE: 20200101
